FAERS Safety Report 24139027 (Version 1)
Quarter: 2024Q3

REPORT INFORMATION
  Report Type: Spontaneous
  Country: US (occurrence: US)
  Receive Date: 20240726
  Receipt Date: 20240726
  Transmission Date: 20241017
  Serious: No
  Sender: STRIDES
  Company Number: US-STRIDES ARCOLAB LIMITED-2023SP017838

PATIENT
  Age: 12 Year
  Sex: Male
  Weight: 56.689 kg

DRUGS (2)
  1. LETROZOLE [Suspect]
     Active Substance: LETROZOLE
     Indication: Precocious puberty
     Dosage: 1 TABLETS PER DAY
     Route: 048
     Dates: start: 201704, end: 202304
  2. LETROZOLE [Suspect]
     Active Substance: LETROZOLE
     Indication: Short stature

REACTIONS (2)
  - Osteoporosis [Unknown]
  - Off label use [Unknown]

NARRATIVE: CASE EVENT DATE: 20170401
